FAERS Safety Report 25846674 (Version 1)
Quarter: 2025Q3

REPORT INFORMATION
  Report Type: Spontaneous
  Country: CN (occurrence: CN)
  Receive Date: 20250925
  Receipt Date: 20250925
  Transmission Date: 20251020
  Serious: Yes (Hospitalization)
  Sender: AMGEN
  Company Number: CN-AMGEN-CHNSP2025186718

PATIENT
  Age: 32 Year
  Sex: Female

DRUGS (2)
  1. XGEVA [Suspect]
     Active Substance: DENOSUMAB
     Indication: Humerus fracture
     Dosage: 120 MILLIGRAM, QMO, INTERVALS OF ONE MONTH FOR THE FIRST SIX DOSES
     Route: 058
     Dates: start: 20220727
  2. XGEVA [Suspect]
     Active Substance: DENOSUMAB
     Route: 058
     Dates: start: 20230308, end: 20230308

REACTIONS (4)
  - Hypercalcaemia [Unknown]
  - Hypokalaemia [Unknown]
  - Off label use [Unknown]
  - Arthralgia [Unknown]

NARRATIVE: CASE EVENT DATE: 20220727
